FAERS Safety Report 5684077-1 (Version None)
Quarter: 2008Q1

REPORT INFORMATION
  Report Type: 
  Country: None (occurrence: None)
  Receive Date: 20080328
  Receipt Date: 20070327
  Transmission Date: 20080703
  Serious: No
  Sender: FDA-Public Use
  Company Number: US-AMGEN-KDL217046

PATIENT
  Sex: Male

DRUGS (4)
  1. NEULASTA [Suspect]
     Indication: CHEMOTHERAPY
     Dates: start: 20070308
  2. VINCRISTINE [Concomitant]
  3. VELCADE [Concomitant]
  4. ADRIAMYCIN PFS [Concomitant]

REACTIONS (1)
  - DRUG INEFFECTIVE [None]
